FAERS Safety Report 20113327 (Version 2)
Quarter: 2021Q4

REPORT INFORMATION
  Report Type: Report from Study
  Country: CN (occurrence: CN)
  Receive Date: 20211125
  Receipt Date: 20211206
  Transmission Date: 20220303
  Serious: Yes (Other)
  Sender: FDA-Public Use
  Company Number: CN-BoehringerIngelheim-2021-BI-125485

PATIENT
  Age: 73 Year
  Sex: Male
  Weight: 53 kg

DRUGS (7)
  1. TENECTEPLASE [Suspect]
     Active Substance: TENECTEPLASE
     Indication: Ischaemic stroke
     Route: 042
     Dates: start: 20210905, end: 20210905
  2. GANGLIOSIDE GM1 [Concomitant]
     Active Substance: GANGLIOSIDE GM1
     Indication: Nervous system disorder
     Route: 042
     Dates: start: 20210906
  3. COMPOUND SODIUM ACETATE RINGER^S [Concomitant]
     Indication: Electrolyte substitution therapy
     Route: 042
     Dates: start: 20210905, end: 20211005
  4. PANTOPRAZOLE SODIUM [Concomitant]
     Active Substance: PANTOPRAZOLE SODIUM
     Indication: Prophylaxis
     Dosage: ENTERIC-COATED
     Route: 048
     Dates: start: 20210906, end: 20211013
  5. ROSUVASTATIN [Concomitant]
     Active Substance: ROSUVASTATIN
     Indication: Lipids increased
     Route: 048
     Dates: start: 20210912
  6. ENOXAPARIN SODIUM [Concomitant]
     Active Substance: ENOXAPARIN SODIUM
     Indication: Anticoagulant therapy
     Route: 042
     Dates: start: 20210912
  7. MANNITOL [Concomitant]
     Active Substance: MANNITOL
     Indication: Dehydration
     Route: 042
     Dates: start: 20210906

REACTIONS (3)
  - Cerebral infarction [Not Recovered/Not Resolved]
  - Haemorrhagic cerebral infarction [Recovered/Resolved]
  - Constipation [Not Recovered/Not Resolved]

NARRATIVE: CASE EVENT DATE: 20210906
